FAERS Safety Report 7329508-6 (Version None)
Quarter: 2011Q1

REPORT INFORMATION
  Report Type: 
  Country: None (occurrence: None)
  Receive Date: 20110303
  Receipt Date: 20110224
  Transmission Date: 20110831
  Serious: Yes (Other)
  Sender: FDA-Public Use
  Company Number: US-PFIZER INC-2011041215

PATIENT
  Sex: Female
  Weight: 65.76 kg

DRUGS (6)
  1. NORCO [Concomitant]
     Indication: PAIN
     Dosage: UNK
  2. CYMBALTA [Concomitant]
     Indication: NEURALGIA
  3. HYDROCHLOROTHIAZIDE [Concomitant]
     Indication: OEDEMA PERIPHERAL
     Dosage: UNK
  4. LYRICA [Suspect]
     Indication: FIBROMYALGIA
     Dosage: 150 MG, 1X/DAY
     Route: 048
     Dates: end: 20110201
  5. SYNTHROID [Concomitant]
     Dosage: UNK
  6. CYMBALTA [Concomitant]
     Indication: FIBROMYALGIA
     Dosage: UNK

REACTIONS (2)
  - CEREBRAL HAEMORRHAGE [None]
  - BACTERIAL INFECTION [None]
